FAERS Safety Report 9554721 (Version 2)
Quarter: 2013Q3

REPORT INFORMATION
  Report Type: Spontaneous
  Country: NL (occurrence: NL)
  Receive Date: 20130926
  Receipt Date: 20130926
  Transmission Date: 20140515
  Serious: Yes (Death, Other)
  Sender: FDA-Public Use
  Company Number: NL-BAXTER-2013BAX036268

PATIENT
  Sex: Male

DRUGS (2)
  1. DIANEAL PD4 GLUCOSE 1,36 % / 13,6 MG/ML [Suspect]
     Indication: RENAL FAILURE
     Route: 033
  2. EXTRANEAL [Suspect]
     Indication: RENAL FAILURE
     Route: 033

REACTIONS (3)
  - Therapy cessation [Fatal]
  - Gastrointestinal perforation [Recovered/Resolved]
  - Sepsis [Recovered/Resolved]
